FAERS Safety Report 10428716 (Version 2)
Quarter: 2015Q2

REPORT INFORMATION
  Report Type: Spontaneous
  Country: JP (occurrence: None)
  Receive Date: 20140902
  Receipt Date: 20150415
  Transmission Date: 20150821
  Serious: Yes (Hospitalization, Other)
  Sender: FDA-Public Use
  Company Number: 2014MPI01077

PATIENT
  Age: 26 Year
  Sex: Female
  Weight: 63 kg

DRUGS (6)
  1. ACETAMINOPHEN. [Concomitant]
     Active Substance: ACETAMINOPHEN
  2. ANTIHISTAMINES [Concomitant]
     Active Substance: ANTIHISTAMINES NOS
  3. ITRIZOLE (ITRACONAZOLE) [Concomitant]
  4. ZOVIRAX [Concomitant]
     Active Substance: ACYCLOVIR
  5. ADCETRIS [Suspect]
     Active Substance: BRENTUXIMAB VEDOTIN
     Indication: HODGKIN^S DISEASE
     Route: 041
     Dates: start: 20140430, end: 20140430
  6. BAKTAR (SULFAMETHOXAZOLE, TRIMETHOPRIM) TABLET [Concomitant]
     Active Substance: SULFAMETHOXAZOLE\TRIMETHOPRIM

REACTIONS (5)
  - Herpes zoster disseminated [None]
  - Bacteraemia [None]
  - Febrile neutropenia [None]
  - Neutropenia [None]
  - Peripheral sensory neuropathy [None]

NARRATIVE: CASE EVENT DATE: 20140505
